FAERS Safety Report 15022795 (Version 1)
Quarter: 2018Q2

REPORT INFORMATION
  Report Type: Spontaneous
  Country: LT (occurrence: LT)
  Receive Date: 20180618
  Receipt Date: 20180618
  Transmission Date: 20180711
  Serious: Yes (Life-Threatening, Hospitalization)
  Sender: FDA-Public Use
  Company Number: LT-ASTRAZENECA-2018SE75699

PATIENT
  Age: 21 Year
  Weight: 110 kg

DRUGS (1)
  1. QUETIAPINE. [Suspect]
     Active Substance: QUETIAPINE
     Dosage: 9.5 G
     Route: 048
     Dates: start: 20180521, end: 20180521

REACTIONS (1)
  - Coma [Recovering/Resolving]
